FAERS Safety Report 7133346-7 (Version None)
Quarter: 2010Q4

REPORT INFORMATION
  Report Type: 
  Country: None (occurrence: None)
  Receive Date: 20101202
  Receipt Date: 20101119
  Transmission Date: 20110411
  Serious: Yes (Death, Hospitalization)
  Sender: FDA-Public Use
  Company Number: US-WATSON-2010-15248

PATIENT
  Age: 60 Year
  Sex: Female

DRUGS (3)
  1. AMLODIPINE BESYLATE [Suspect]
     Indication: POISONING
  2. NAPROXEN SODIUM [Suspect]
     Indication: POISONING
  3. METOPROLOL TARTRATE [Suspect]
     Indication: POISONING

REACTIONS (3)
  - DEATH [None]
  - DRUG TOXICITY [None]
  - HYPOTENSION [None]
